FAERS Safety Report 16214090 (Version 1)
Quarter: 2019Q2

REPORT INFORMATION
  Report Type: Spontaneous
  Country: IT (occurrence: IT)
  Receive Date: 20190418
  Receipt Date: 20190418
  Transmission Date: 20190711
  Serious: Yes (Other)
  Sender: FDA-Public Use
  Company Number: IT-ELI_LILLY_AND_COMPANY-IT201904006515

PATIENT
  Age: 71 Year
  Sex: Female
  Weight: 46 kg

DRUGS (2)
  1. RAMUCIRUMAB [Suspect]
     Active Substance: RAMUCIRUMAB
     Indication: PRODUCT USED FOR UNKNOWN INDICATION
     Dosage: 108 MG, CYCLICAL
     Route: 042
     Dates: start: 20181008, end: 20181217
  2. PACLITAXEL. [Concomitant]
     Active Substance: PACLITAXEL
     Indication: ADENOCARCINOMA GASTRIC
     Route: 042
     Dates: start: 20181008, end: 20190128

REACTIONS (4)
  - Proteinuria [Recovering/Resolving]
  - Hypoalbuminaemia [Recovering/Resolving]
  - Gravitational oedema [Recovering/Resolving]
  - Nephrotic syndrome [Recovering/Resolving]

NARRATIVE: CASE EVENT DATE: 20190109
